FAERS Safety Report 9514025 (Version 3)
Quarter: 2013Q3

REPORT INFORMATION
  Report Type: Spontaneous
  Country: US (occurrence: US)
  Receive Date: 20130910
  Receipt Date: 20130920
  Transmission Date: 20140515
  Serious: Yes (Hospitalization, Other)
  Sender: FDA-Public Use
  Company Number: US-ASTRAZENECA-2013SE50208

PATIENT
  Age: 59 Year
  Sex: Female
  Weight: 69.4 kg

DRUGS (7)
  1. SYMBICORT [Suspect]
     Indication: CHRONIC OBSTRUCTIVE PULMONARY DISEASE
     Dosage: 160/4.5 2 PUFFS BID
     Route: 055
     Dates: start: 20130604
  2. SYMBICORT [Suspect]
     Indication: CHRONIC OBSTRUCTIVE PULMONARY DISEASE
     Dosage: 160/4.5 2 PUFFS DAILY
     Route: 055
     Dates: start: 20130604
  3. SYMBICORT [Suspect]
     Indication: CHRONIC OBSTRUCTIVE PULMONARY DISEASE
     Dosage: 160/4.5 2 PUFFS DAILY
     Route: 055
     Dates: start: 201306, end: 20130911
  4. LISINOPRIL [Suspect]
     Indication: BLOOD PRESSURE
     Route: 048
     Dates: start: 2010
  5. COMBIVENT [Concomitant]
     Dosage: PRN
     Route: 055
     Dates: start: 20130604
  6. SPIRIVA [Concomitant]
     Indication: CHRONIC OBSTRUCTIVE PULMONARY DISEASE
     Dosage: DAILY
     Route: 055
     Dates: start: 20130604
  7. CARVEDILOL [Concomitant]
     Route: 048
     Dates: start: 201306

REACTIONS (21)
  - Pneumonia [Unknown]
  - Cardiomyopathy [Unknown]
  - Silent myocardial infarction [Unknown]
  - Dyspnoea [Recovering/Resolving]
  - Wheezing [Unknown]
  - Feeling abnormal [Recovering/Resolving]
  - Adverse event [Unknown]
  - Glossodynia [Not Recovered/Not Resolved]
  - Visual acuity reduced [Not Recovered/Not Resolved]
  - Lung disorder [Unknown]
  - Pulmonary calcification [Unknown]
  - Chronic obstructive pulmonary disease [Unknown]
  - Weight increased [Unknown]
  - Malaise [Unknown]
  - Asthenia [Unknown]
  - Bronchospasm [Unknown]
  - Oropharyngeal pain [Not Recovered/Not Resolved]
  - Incorrect product storage [Unknown]
  - Intentional drug misuse [Unknown]
  - Intentional drug misuse [Unknown]
  - Drug dose omission [Unknown]
